FAERS Safety Report 5746736-1 (Version None)
Quarter: 2008Q2

REPORT INFORMATION
  Report Type: 
  Country: None (occurrence: None)
  Receive Date: 20080522
  Receipt Date: 20080514
  Transmission Date: 20081010
  Serious: Yes (Hospitalization, Other)
  Sender: FDA-Public Use
  Company Number: US-BAYER-200820104NA

PATIENT
  Age: 57 Year
  Sex: Male

DRUGS (14)
  1. DACARBAZINE [Suspect]
     Indication: MALIGNANT MELANOMA
     Route: 042
     Dates: start: 20080121, end: 20080324
  2. IPILIMUMAB OR PLACEBO [Suspect]
     Indication: MALIGNANT MELANOMA
     Route: 042
     Dates: start: 20080121, end: 20080324
  3. LEXAPRO [Concomitant]
     Dates: start: 20080326, end: 20080101
  4. PAXENE [Concomitant]
  5. NAMENDA [Concomitant]
  6. CRESTOR [Concomitant]
  7. LISINOPRIL [Concomitant]
  8. TRAZODONE HCL [Concomitant]
     Dates: end: 20080408
  9. KYTRIL [Concomitant]
  10. LORAZEPAM [Concomitant]
     Dates: start: 20080325, end: 20080405
  11. PROCHLORPERAZINE [Concomitant]
  12. CHANTIX [Concomitant]
  13. DILAUDID [Concomitant]
     Dates: start: 20080325, end: 20080408
  14. ZOFRAN [Concomitant]
     Dates: start: 20080325, end: 20080408

REACTIONS (7)
  - ALANINE AMINOTRANSFERASE INCREASED [None]
  - ASPARTATE AMINOTRANSFERASE INCREASED [None]
  - CHEST X-RAY ABNORMAL [None]
  - DIALYSIS [None]
  - DYSPNOEA [None]
  - GLOMERULAR FILTRATION RATE DECREASED [None]
  - HEPATORENAL SYNDROME [None]
